FAERS Safety Report 4377921-1 (Version None)
Quarter: 2004Q2

REPORT INFORMATION
  Report Type: 
  Country: None (occurrence: None)
  Receive Date: 20040615
  Receipt Date: 20040615
  Transmission Date: 20050107
  Serious: Yes (Hospitalization)
  Sender: FDA-Public Use
  Company Number: None

PATIENT
  Age: 79 Year
  Sex: Male
  Weight: 82.5547 kg

DRUGS (8)
  1. TRANSDERM SCOP [Suspect]
     Indication: DIZZINESS
     Dosage: 1 PATCH 1 TIME ONLY TOPICAL
     Route: 061
     Dates: start: 20040204, end: 20040205
  2. TRANSDERM SCOP [Suspect]
     Indication: VERTIGO
     Dosage: 1 PATCH 1 TIME ONLY TOPICAL
     Route: 061
     Dates: start: 20040204, end: 20040205
  3. ARICEPT [Concomitant]
  4. ANTIVERT [Concomitant]
  5. SEPTRA [Concomitant]
  6. ZOCOR [Concomitant]
  7. ASPIRIN [Concomitant]
  8. SYNTHROID [Concomitant]

REACTIONS (3)
  - ACUTE PSYCHOSIS [None]
  - HALLUCINATION [None]
  - TREMOR [None]
